FAERS Safety Report 16190690 (Version 1)
Quarter: 2019Q2

REPORT INFORMATION
  Report Type: Spontaneous
  Country: PT (occurrence: PT)
  Receive Date: 20190412
  Receipt Date: 20190412
  Transmission Date: 20190711
  Serious: Yes (Death, Other)
  Sender: FDA-Public Use
  Company Number: PT-MYLANLABS-2019M1035027

PATIENT
  Age: 74 Year
  Sex: Male

DRUGS (1)
  1. TOPOTECAN [Suspect]
     Active Substance: TOPOTECAN HYDROCHLORIDE
     Indication: SMALL CELL LUNG CANCER
     Dosage: UNK, 3 CYCLES
     Route: 048

REACTIONS (3)
  - Malignant neoplasm progression [Fatal]
  - Small cell lung cancer [Fatal]
  - Product use in unapproved indication [Unknown]
